FAERS Safety Report 17986245 (Version 2)
Quarter: 2020Q3

REPORT INFORMATION
  Report Type: Report from Study
  Country: CA (occurrence: CA)
  Receive Date: 20200707
  Receipt Date: 20200814
  Transmission Date: 20201103
  Serious: Yes (Disabling, Other)
  Sender: FDA-Public Use
  Company Number: CA-TAKEDA-2019TUS035433

PATIENT
  Age: 74 Year
  Sex: Female
  Weight: 112 kg

DRUGS (7)
  1. PONATINIB [Suspect]
     Active Substance: PONATINIB
     Indication: CHRONIC MYELOID LEUKAEMIA
     Dosage: UNK
     Route: 048
     Dates: start: 20190321
  2. PONATINIB [Suspect]
     Active Substance: PONATINIB
     Dosage: 15 MILLIGRAM, QD
     Route: 048
     Dates: start: 20190509
  3. AMLODIPINE [Concomitant]
     Active Substance: AMLODIPINE BESYLATE
     Dosage: 10 MILLIGRAM, QD
  4. SYNTHROID [Concomitant]
     Active Substance: LEVOTHYROXINE SODIUM
     Dosage: 225 MICROGRAM, QD
  5. FUROSEMIDE. [Concomitant]
     Active Substance: FUROSEMIDE
     Dosage: 40 MILLIGRAM, BID
  6. PREGABALIN. [Concomitant]
     Active Substance: PREGABALIN
     Dosage: UNK
  7. RABEPRAZOLE [Concomitant]
     Active Substance: RABEPRAZOLE
     Dosage: 20 MILLIGRAM, QD

REACTIONS (12)
  - Rash [Recovered/Resolved]
  - Dyspnoea [Unknown]
  - Gastrooesophageal reflux disease [Unknown]
  - Fatigue [Unknown]
  - Hepatic enzyme abnormal [Recovered/Resolved]
  - Lung neoplasm malignant [Unknown]
  - Constipation [Unknown]
  - Nausea [Unknown]
  - Arthralgia [Not Recovered/Not Resolved]
  - Peripheral swelling [Unknown]
  - Muscle spasms [Unknown]
  - Hepatitis [Recovering/Resolving]

NARRATIVE: CASE EVENT DATE: 20190828
